FAERS Safety Report 12893091 (Version 2)
Quarter: 2016Q4

REPORT INFORMATION
  Report Type: Spontaneous
  Country: NL (occurrence: NL)
  Receive Date: 20161028
  Receipt Date: 20161122
  Transmission Date: 20170207
  Serious: Yes (Death)
  Sender: FDA-Public Use
  Company Number: NL-PFIZER INC-2016493006

PATIENT
  Age: 60 Year
  Sex: Female
  Weight: 73 kg

DRUGS (4)
  1. DOXORUBICINE /00330901/ [Concomitant]
     Active Substance: DOXORUBICIN
     Dosage: 1 DF, UNK
     Route: 042
     Dates: start: 20160520
  2. DOCETAXEL. [Suspect]
     Active Substance: DOCETAXEL
     Indication: BREAST CANCER
     Dosage: 90 MG, UNK
     Route: 042
     Dates: start: 20160520
  3. CYCLOFOSFAMIDE SANDOZ [Concomitant]
     Active Substance: CYCLOPHOSPHAMIDE
     Dosage: 1 DF, UNK
     Route: 042
     Dates: start: 20160520
  4. NEULASTA [Concomitant]
     Active Substance: PEGFILGRASTIM
     Dosage: 1 DF, UNK
     Route: 058
     Dates: start: 20160520

REACTIONS (2)
  - Diarrhoea [Unknown]
  - Colitis ischaemic [Fatal]

NARRATIVE: CASE EVENT DATE: 20160522
